FAERS Safety Report 5289078-3 (Version None)
Quarter: 2007Q1

REPORT INFORMATION
  Report Type: 
  Country: None (occurrence: None)
  Receive Date: 20070116
  Receipt Date: 20061230
  Transmission Date: 20070707
  Serious: Yes (Death, Hospitalization)
  Sender: FDA-Public Use
  Company Number: 2007BM000001

PATIENT
  Age: 48 Year
  Sex: Male

DRUGS (3)
  1. PREDNISOLONE (PREDNISOLONE) [Suspect]
     Indication: COLITIS ULCERATIVE
     Dosage: PO
     Route: 048
  2. AZATHIOPRINE [Suspect]
     Indication: COLITIS ULCERATIVE
     Dosage: PO
     Route: 048
  3. ORAPRED [Suspect]

REACTIONS (1)
  - MENINGITIS CRYPTOCOCCAL [None]
